FAERS Safety Report 9759896 (Version 1)
Quarter: 2013Q4

REPORT INFORMATION
  Report Type: Spontaneous
  Country: BR (occurrence: BR)
  Receive Date: 20131216
  Receipt Date: 20131216
  Transmission Date: 20140711
  Serious: Yes (Other)
  Sender: FDA-Public Use
  Company Number: BR-PFIZER INC-2013356496

PATIENT
  Age: 62 Year
  Sex: Female
  Weight: 55 kg

DRUGS (4)
  1. FRONTAL [Suspect]
     Indication: RELAXATION THERAPY
     Dosage: 2 TABLETS OF 2MG (4 MG), DAILY
     Route: 048
     Dates: start: 2011, end: 2012
  2. FRONTAL [Suspect]
     Dosage: 1 TABLET OF 2 MG, DAILY
     Route: 048
     Dates: start: 2012
  3. LIPITOR [Suspect]
     Indication: BLOOD CHOLESTEROL ABNORMAL
     Dosage: 10 MG, DAILY
     Route: 048
     Dates: start: 2003
  4. FRONTAL XR [Suspect]
     Indication: RELAXATION THERAPY
     Dosage: 2 TABLETS OF 2MG (4 MG), DAILY
     Route: 048
     Dates: start: 2012

REACTIONS (2)
  - Intracranial aneurysm [Unknown]
  - Off label use [Not Recovered/Not Resolved]
